FAERS Safety Report 10263329 (Version 2)
Quarter: 2014Q3

REPORT INFORMATION
  Report Type: Spontaneous
  Country: JP (occurrence: JP)
  Receive Date: 20140626
  Receipt Date: 20140724
  Transmission Date: 20150326
  Serious: Yes (Hospitalization, Other)
  Sender: FDA-Public Use
  Company Number: JP-B.I. PHARMACEUTICALS,INC./RIDGEFIELD-2014-BI-28967NB

PATIENT
  Age: 70 Year
  Sex: Male
  Weight: 39.05 kg

DRUGS (15)
  1. ETIZOLAM [Concomitant]
     Active Substance: ETIZOLAM
     Dosage: 0.5 MG
     Route: 065
  2. ARTIST [Concomitant]
     Active Substance: CARVEDILOL
     Dosage: 20 MG
     Route: 065
  3. OLMETEC [Concomitant]
     Active Substance: OLMESARTAN MEDOXOMIL
     Dosage: 20 MG
     Route: 065
  4. TAKEPRON [Concomitant]
     Active Substance: LANSOPRAZOLE
     Dosage: 15 MG
     Route: 065
  5. ALLEGRA [Concomitant]
     Active Substance: FEXOFENADINE HYDROCHLORIDE
     Dosage: 60 MG
     Route: 065
  6. IRRICOLON M [Concomitant]
     Dosage: DAILY DOSE: 1 DF
     Route: 065
  7. TRAZENTA [Suspect]
     Active Substance: LINAGLIPTIN
     Indication: TYPE 2 DIABETES MELLITUS
     Dosage: 5 MG
     Route: 048
  8. TRAZENTA [Suspect]
     Active Substance: LINAGLIPTIN
     Dosage: 5 MG
     Route: 048
  9. REMITCH [Concomitant]
     Active Substance: NALFURAFINE HYDROCHLORIDE
     Dosage: 2.5 NR
     Route: 065
  10. MYSLEE [Concomitant]
     Active Substance: ZOLPIDEM TARTRATE
     Dosage: 5 MG
     Route: 065
  11. GASCON [Concomitant]
     Active Substance: DIMETHICONE
     Dosage: 120 MG
     Route: 065
  12. LANTUS [Concomitant]
     Active Substance: INSULIN GLARGINE
     Route: 065
  13. GASLON N OD [Concomitant]
     Dosage: 4 MG
     Route: 065
  14. ADALAT CC [Concomitant]
     Active Substance: NIFEDIPINE
     Dosage: 20 MG
     Route: 065
  15. DAIKENCHUTO [Concomitant]
     Active Substance: HERBALS
     Dosage: DAILY DOSE: 3 DF
     Route: 065

REACTIONS (5)
  - Hypoglycaemia [Unknown]
  - Hyperammonaemia [Recovered/Resolved]
  - Altered state of consciousness [Unknown]
  - Cardiac failure chronic [Not Recovered/Not Resolved]
  - Interstitial lung disease [Unknown]

NARRATIVE: CASE EVENT DATE: 20140623
